FAERS Safety Report 14871659 (Version 2)
Quarter: 2018Q2

REPORT INFORMATION
  Report Type: Spontaneous
  Country: GB (occurrence: GB)
  Receive Date: 20180509
  Receipt Date: 20180607
  Transmission Date: 20180711
  Serious: Yes (Life-Threatening, Other)
  Sender: FDA-Public Use
  Company Number: GB-ASTRAZENECA-2018SE58959

PATIENT
  Age: 67 Year
  Sex: Male
  Weight: 100 kg

DRUGS (8)
  1. ACETYLSALICYLIC ACID [Concomitant]
     Active Substance: ASPIRIN
  2. OMEPRAZOLE. [Concomitant]
     Active Substance: OMEPRAZOLE
  3. IRBESARTAN. [Concomitant]
     Active Substance: IRBESARTAN
  4. PIOGLITAZONE. [Suspect]
     Active Substance: PIOGLITAZONE
     Dosage: 45.0MG UNKNOWN
     Route: 048
     Dates: start: 2012
  5. SAXAGLIPTIN [Suspect]
     Active Substance: SAXAGLIPTIN
     Dosage: 5.0MG UNKNOWN
     Route: 048
     Dates: start: 2011
  6. ISMO [Concomitant]
     Active Substance: ISOSORBIDE MONONITRATE
  7. GLUCOPHAGE XR [Suspect]
     Active Substance: METFORMIN HYDROCHLORIDE
     Dosage: 1000 MG, UNKNOWN (NON-AZ)
     Route: 048
     Dates: start: 2007, end: 2018
  8. ALLOPURINOL. [Concomitant]
     Active Substance: ALLOPURINOL

REACTIONS (3)
  - Abnormal loss of weight [Unknown]
  - Pancreatic carcinoma [Not Recovered/Not Resolved]
  - Back pain [Recovering/Resolving]

NARRATIVE: CASE EVENT DATE: 201802
